FAERS Safety Report 6576064-6 (Version None)
Quarter: 2010Q1

REPORT INFORMATION
  Report Type: 
  Country: None (occurrence: None)
  Receive Date: 20100209
  Receipt Date: 20100129
  Transmission Date: 20100710
  Serious: Yes (Hospitalization)
  Sender: FDA-Public Use
  Company Number: PHHY2010MX05245

PATIENT
  Age: 82 Year
  Sex: Female

DRUGS (1)
  1. DIOVAN HCT [Suspect]
     Indication: HYPERTENSION
     Dosage: 1 TABLET (320/12.5 MG) PER DAY
     Route: 048
     Dates: start: 20070201

REACTIONS (7)
  - DECREASED APPETITE [None]
  - FACIAL BONES FRACTURE [None]
  - FALL [None]
  - KIDNEY INFECTION [None]
  - PYREXIA [None]
  - SURGERY [None]
  - TREMOR [None]
